FAERS Safety Report 5604545-8 (Version None)
Quarter: 2008Q1

REPORT INFORMATION
  Report Type: 
  Country: None (occurrence: None)
  Receive Date: 20080124
  Receipt Date: 20080124
  Transmission Date: 20080703
  Serious: Yes (Other)
  Sender: FDA-Public Use
  Company Number: None

PATIENT
  Age: 38 Year
  Sex: Female
  Weight: 130.6359 kg

DRUGS (1)
  1. CHANTIX [Suspect]
     Indication: SMOKING CESSATION THERAPY
     Dates: start: 20071225, end: 20080123

REACTIONS (3)
  - NIGHTMARE [None]
  - SLEEP TERROR [None]
  - THERAPEUTIC RESPONSE UNEXPECTED [None]
